FAERS Safety Report 10012041 (Version 3)
Quarter: 2014Q2

REPORT INFORMATION
  Report Type: Spontaneous
  Country: IE (occurrence: IE)
  Receive Date: 20140314
  Receipt Date: 20140609
  Transmission Date: 20141212
  Serious: Yes (Death, Life-Threatening, Hospitalization, Disabling)
  Sender: FDA-Public Use
  Company Number: PHFR2014IE002142

PATIENT
  Age: 55 Year
  Sex: Male

DRUGS (7)
  1. CLOZARIL [Suspect]
     Indication: SCHIZOPHRENIA
     Dosage: UNK
     Route: 048
     Dates: start: 20111202
  2. CLOZARIL [Suspect]
     Dosage: 200 MG, DAILY
     Route: 048
     Dates: start: 201201
  3. AMISULPRIDE [Concomitant]
     Dosage: 300 MG, UNK
     Route: 048
     Dates: start: 201201
  4. AMITRIPTYLINE [Concomitant]
     Dosage: 150 MG, DAILY
     Route: 048
  5. BROMOCRIPTINE [Concomitant]
     Indication: SCHIZOPHRENIA
     Dosage: 300 MG, DAILY
     Route: 048
     Dates: start: 201201
  6. PROCYCLIDINE [Concomitant]
     Dosage: 5 MG, UNK
     Route: 048
     Dates: start: 201201
  7. MADOPAR [Concomitant]
     Dosage: 375 MG, DAILY
     Route: 048
     Dates: start: 201201

REACTIONS (3)
  - Pleural effusion [Fatal]
  - Pneumonia [Fatal]
  - Lower respiratory tract infection [Fatal]
